FAERS Safety Report 6621505-9 (Version None)
Quarter: 2010Q1

REPORT INFORMATION
  Report Type: 
  Country: None (occurrence: None)
  Receive Date: 20100223
  Receipt Date: 20100108
  Transmission Date: 20100710
  Serious: No
  Sender: FDA-Public Use
  Company Number: 8052732

PATIENT
  Sex: Female

DRUGS (3)
  1. CIMZIA [Suspect]
     Dosage: 200 MG ONCE EVERY 2 WEEKS SUBCUTANEOUS, 200 MG ONCE EVERY 2 WEEKS SUBCUTANEOUS
     Route: 058
     Dates: start: 20090108
  2. CIMZIA [Suspect]
     Dosage: 200 MG ONCE EVERY 2 WEEKS SUBCUTANEOUS, 200 MG ONCE EVERY 2 WEEKS SUBCUTANEOUS
     Route: 058
     Dates: start: 20090108
  3. CIMZIA [Suspect]

REACTIONS (5)
  - ARTHRALGIA [None]
  - FATIGUE [None]
  - FREQUENT BOWEL MOVEMENTS [None]
  - INJECTION SITE NODULE [None]
  - JOINT SWELLING [None]
